FAERS Safety Report 9324020 (Version 3)
Quarter: 2013Q3

REPORT INFORMATION
  Report Type: Spontaneous
  Country: US (occurrence: US)
  Receive Date: 20130603
  Receipt Date: 20130724
  Transmission Date: 20140515
  Serious: Yes (Death, Hospitalization, Other)
  Sender: FDA-Public Use
  Company Number: US-PFIZER INC-2013138760

PATIENT
  Age: 73 Year
  Sex: Male
  Weight: 83.63 kg

DRUGS (10)
  1. INLYTA [Suspect]
     Indication: RENAL CELL CARCINOMA
     Dosage: 5 MG, 2X/DAY
     Route: 048
     Dates: start: 20130320, end: 20130407
  2. ASA [Suspect]
     Dosage: 81 MG, EVERY THREE DAYS
  3. ASA [Suspect]
     Dosage: 81 MG, 1X/DAY
  4. ENABLEX [Concomitant]
     Dosage: 7.5 MG, 1X/DAY
  5. PERCOCET [Concomitant]
     Dosage: OXYCODONE HYDROCHLORIDE 5/ PARACETAMOL 325 (1 TO 2 TABLETS EVERY 4 HOURS) AS NEEDED
  6. PERCOCET [Concomitant]
     Dosage: UNK, P.R.N.
  7. CALCIUM WITH VITAMIN D [Concomitant]
     Dosage: 1 TABLET TWICE DAILY (CALCIUM 500 MG PLUS D)
     Route: 048
  8. TERAZOSIN [Concomitant]
     Dosage: 4 MG, IN THE EVENING
  9. ACIDOPHILUS [Concomitant]
     Dosage: 175 MG, 1X/DAY
  10. LISINOPRIL [Concomitant]
     Dosage: UNK

REACTIONS (11)
  - Pneumonia [Fatal]
  - Disease progression [Fatal]
  - Renal cell carcinoma [Fatal]
  - Gastrointestinal haemorrhage [Recovered/Resolved]
  - Cerebrovascular accident [Recovered/Resolved]
  - Otitis media [Unknown]
  - Asthenia [Unknown]
  - Musculoskeletal discomfort [Unknown]
  - Weight decreased [Unknown]
  - Decreased appetite [Unknown]
  - Constipation [Unknown]
